FAERS Safety Report 12118592 (Version 1)
Quarter: 2016Q1

REPORT INFORMATION
  Report Type: Spontaneous
  Country: TR (occurrence: TR)
  Receive Date: 20160226
  Receipt Date: 20160226
  Transmission Date: 20160526
  Serious: Yes (Hospitalization, Other)
  Sender: FDA-Public Use
  Company Number: TR-ACTAVIS-2016-04151

PATIENT
  Age: 55 Year
  Sex: Male

DRUGS (6)
  1. PREDNISOLONE. [Concomitant]
     Active Substance: PREDNISOLONE
     Indication: IMMUNOSUPPRESSANT DRUG THERAPY
     Dosage: 5 MG, DAILY
     Route: 065
  2. GLUCOSE (UNKNOWN) [Suspect]
     Active Substance: DEXTROSE
     Indication: PERITONEAL DIALYSIS
     Dosage: 4 DAILY MANUAL EXCHANGES WITH 2000 CC SOLUTIONS CONTAINING DEXTROSE AND ICODEXTRIN
     Route: 033
  3. ICODEXTRIN [Suspect]
     Active Substance: ICODEXTRIN
     Indication: PERITONEAL DIALYSIS
     Dosage: 4 DAILY MANUAL EXCHANGES WITH 2000 CC SOLUTIONS CONTAINING DEXTROSE AND ICODEXTRIN
     Route: 033
  4. MYCOPHENOLATE SODIUM [Concomitant]
     Active Substance: MYCOPHENOLATE SODIUM
     Indication: IMMUNOSUPPRESSANT DRUG THERAPY
     Dosage: 1040 MG, DAILY
     Route: 065
  5. TACROLIMUS (UNKNOWN) [Suspect]
     Active Substance: TACROLIMUS
     Dosage: 4 MG, DAILY
     Route: 065
  6. RAMIPRIL (UNKNOWN) [Suspect]
     Active Substance: RAMIPRIL
     Indication: ENCAPSULATING PERITONEAL SCLEROSIS
     Dosage: LOW DOSES
     Route: 065

REACTIONS (2)
  - Hypotension [Unknown]
  - Encapsulating peritoneal sclerosis [Recovered/Resolved]
